FAERS Safety Report 26111327 (Version 1)
Quarter: 2025Q4

REPORT INFORMATION
  Report Type: Spontaneous
  Country: CN (occurrence: CN)
  Receive Date: 20251202
  Receipt Date: 20251202
  Transmission Date: 20260118
  Serious: Yes (Other)
  Sender: DAIICHI
  Company Number: CN-DSJP-DS-2025-180193-CN

PATIENT
  Age: 43 Year
  Sex: Female

DRUGS (3)
  1. TRASTUZUMAB DERUXTECAN [Suspect]
     Active Substance: TRASTUZUMAB DERUXTECAN
     Indication: Triple negative breast cancer
     Dosage: UNK
     Route: 065
     Dates: start: 202409
  2. TRASTUZUMAB DERUXTECAN [Suspect]
     Active Substance: TRASTUZUMAB DERUXTECAN
     Dosage: UNK
     Route: 065
     Dates: start: 202409
  3. TRASTUZUMAB DERUXTECAN [Suspect]
     Active Substance: TRASTUZUMAB DERUXTECAN
     Dosage: UNK
     Route: 065
     Dates: start: 202409

REACTIONS (2)
  - Dermatomyositis [Not Recovered/Not Resolved]
  - Interstitial lung disease [Unknown]

NARRATIVE: CASE EVENT DATE: 20240901
